FAERS Safety Report 9568338 (Version 1)
Quarter: 2013Q3

REPORT INFORMATION
  Report Type: Spontaneous
  Country: US (occurrence: US)
  Receive Date: 20130930
  Receipt Date: 20130930
  Transmission Date: 20140515
  Serious: No
  Sender: FDA-Public Use
  Company Number: US-AMGEN-USASP2013047637

PATIENT
  Age: 32 Year
  Sex: Male

DRUGS (2)
  1. ENBREL [Suspect]
     Indication: PRODUCT USED FOR UNKNOWN INDICATION
     Dosage: 50 MG, QWK
     Route: 058
     Dates: start: 201303, end: 201306
  2. CELEBREX [Concomitant]
     Dosage: 50 MG, UNK

REACTIONS (3)
  - Productive cough [Unknown]
  - Wheezing [Unknown]
  - Myalgia [Unknown]
